FAERS Safety Report 10444258 (Version 2)
Quarter: 2014Q3

REPORT INFORMATION
  Report Type: Spontaneous
  Country: JP (occurrence: JP)
  Receive Date: 20140910
  Receipt Date: 20140926
  Transmission Date: 20150326
  Serious: Yes (Other)
  Sender: FDA-Public Use
  Company Number: JP-ROCHE-1460399

PATIENT
  Age: 62 Year
  Sex: Female
  Weight: 32 kg

DRUGS (1)
  1. DENOSINE [Suspect]
     Active Substance: GANCICLOVIR
     Indication: PRODUCT USED FOR UNKNOWN INDICATION
     Dosage: 80 MG/DAY
     Route: 041

REACTIONS (3)
  - Accidental overdose [Unknown]
  - Bone marrow failure [Unknown]
  - Platelet count decreased [Unknown]
